FAERS Safety Report 12504486 (Version 1)
Quarter: 2016Q2

REPORT INFORMATION
  Report Type: Spontaneous
  Country: JP (occurrence: JP)
  Receive Date: 20160628
  Receipt Date: 20160628
  Transmission Date: 20160815
  Serious: Yes (Other)
  Sender: FDA-Public Use
  Company Number: PHJP2016JP017752

PATIENT
  Age: 32 Year
  Sex: Female

DRUGS (1)
  1. FEMARA [Suspect]
     Active Substance: LETROZOLE
     Indication: INFERTILITY
     Dosage: UNK
     Route: 048
     Dates: start: 20160618

REACTIONS (3)
  - Angina pectoris [Unknown]
  - Product use issue [Unknown]
  - Chest pain [Unknown]
